FAERS Safety Report 24789636 (Version 1)
Quarter: 2024Q4

REPORT INFORMATION
  Report Type: Report from Study
  Country: JP (occurrence: JP)
  Receive Date: 20241230
  Receipt Date: 20241230
  Transmission Date: 20250115
  Serious: Yes (Hospitalization, Other)
  Sender: ALEXION PHARMACEUTICALS
  Company Number: JP-ALXN-201811JPN000002JP

PATIENT
  Age: 10 Year
  Weight: 13 kg

DRUGS (130)
  1. STRENSIQ [Suspect]
     Active Substance: ASFOTASE ALFA
     Indication: Hypophosphatasia
     Dosage: 2 MILLIGRAM/KILOGRAM, TIW
     Route: 058
  2. STRENSIQ [Suspect]
     Active Substance: ASFOTASE ALFA
     Dosage: 2 MILLIGRAM/KILOGRAM, TIW
  3. STRENSIQ [Suspect]
     Active Substance: ASFOTASE ALFA
     Dosage: 2 MILLIGRAM/KILOGRAM, TIW
  4. STRENSIQ [Suspect]
     Active Substance: ASFOTASE ALFA
     Dosage: 2 MILLIGRAM/KILOGRAM, TIW
     Route: 058
  5. STRENSIQ [Suspect]
     Active Substance: ASFOTASE ALFA
     Dosage: 1.8 MILLIGRAM/KILOGRAM, SINGLE
  6. STRENSIQ [Suspect]
     Active Substance: ASFOTASE ALFA
     Dosage: 1.8 MILLIGRAM/KILOGRAM, SINGLE
     Route: 058
  7. STRENSIQ [Suspect]
     Active Substance: ASFOTASE ALFA
     Dosage: 1.8 MILLIGRAM/KILOGRAM, SINGLE
  8. STRENSIQ [Suspect]
     Active Substance: ASFOTASE ALFA
     Dosage: 1.8 MILLIGRAM/KILOGRAM, SINGLE
     Route: 058
  9. STRENSIQ [Suspect]
     Active Substance: ASFOTASE ALFA
     Dosage: 1.6 MILLIGRAM/KILOGRAM, TIW
  10. STRENSIQ [Suspect]
     Active Substance: ASFOTASE ALFA
     Dosage: 1.6 MILLIGRAM/KILOGRAM, TIW
  11. STRENSIQ [Suspect]
     Active Substance: ASFOTASE ALFA
     Dosage: 1.6 MILLIGRAM/KILOGRAM, TIW
     Route: 058
  12. STRENSIQ [Suspect]
     Active Substance: ASFOTASE ALFA
     Dosage: 1.6 MILLIGRAM/KILOGRAM, TIW
     Route: 058
  13. STRENSIQ [Suspect]
     Active Substance: ASFOTASE ALFA
     Dosage: 2 MILLIGRAM/KILOGRAM, TIW
  14. STRENSIQ [Suspect]
     Active Substance: ASFOTASE ALFA
     Dosage: 2 MILLIGRAM/KILOGRAM, TIW
     Route: 058
  15. STRENSIQ [Suspect]
     Active Substance: ASFOTASE ALFA
     Dosage: 2 MILLIGRAM/KILOGRAM, TIW
  16. STRENSIQ [Suspect]
     Active Substance: ASFOTASE ALFA
     Dosage: 2 MILLIGRAM/KILOGRAM, TIW
     Route: 058
  17. PHENOBARBITAL [Concomitant]
     Active Substance: PHENOBARBITAL
     Indication: Hypophosphatasia
     Dosage: UNK
  18. PHENOBARBITAL [Concomitant]
     Active Substance: PHENOBARBITAL
     Dosage: UNK
     Route: 048
  19. PHENOBARBITAL [Concomitant]
     Active Substance: PHENOBARBITAL
     Dosage: 55 MILLIGRAM, BID
  20. PHENOBARBITAL [Concomitant]
     Active Substance: PHENOBARBITAL
     Dosage: 55 MILLIGRAM, BID
     Route: 048
  21. PHENOBARBITAL [Concomitant]
     Active Substance: PHENOBARBITAL
     Dosage: 27.5 MILLIGRAM, BID
  22. PHENOBARBITAL [Concomitant]
     Active Substance: PHENOBARBITAL
     Dosage: 27.5 MILLIGRAM, BID
     Route: 048
  23. PHENOBARBITAL [Concomitant]
     Active Substance: PHENOBARBITAL
     Dosage: 44 MILLIGRAM, BID
  24. PHENOBARBITAL [Concomitant]
     Active Substance: PHENOBARBITAL
     Dosage: 44 MILLIGRAM, BID
     Route: 048
  25. PHENOBARBITAL [Concomitant]
     Active Substance: PHENOBARBITAL
     Dosage: 45 MILLIGRAM, BID
  26. PHENOBARBITAL [Concomitant]
     Active Substance: PHENOBARBITAL
     Dosage: 45 MILLIGRAM, BID
     Route: 048
  27. PHENOBARBITAL [Concomitant]
     Active Substance: PHENOBARBITAL
     Dosage: 50 MILLIGRAM, BID
  28. PHENOBARBITAL [Concomitant]
     Active Substance: PHENOBARBITAL
     Dosage: 50 MILLIGRAM, BID
     Route: 048
  29. RIVOTRIL [Concomitant]
     Active Substance: CLONAZEPAM
     Indication: Hypophosphatasia
     Dosage: UNK
     Route: 048
  30. RIVOTRIL [Concomitant]
     Active Substance: CLONAZEPAM
     Dosage: UNK
  31. RIVOTRIL [Concomitant]
     Active Substance: CLONAZEPAM
     Dosage: UNK
  32. RIVOTRIL [Concomitant]
     Active Substance: CLONAZEPAM
     Dosage: UNK
     Route: 048
  33. RIVOTRIL [Concomitant]
     Active Substance: CLONAZEPAM
     Dosage: 2.5 MILLIGRAM, BID
  34. RIVOTRIL [Concomitant]
     Active Substance: CLONAZEPAM
     Dosage: 2.5 MILLIGRAM, BID
     Route: 048
  35. RIVOTRIL [Concomitant]
     Active Substance: CLONAZEPAM
     Dosage: 2.5 MILLIGRAM, BID
     Route: 048
  36. RIVOTRIL [Concomitant]
     Active Substance: CLONAZEPAM
     Dosage: 2.5 MILLIGRAM, BID
  37. RIVOTRIL [Concomitant]
     Active Substance: CLONAZEPAM
     Dosage: 3 MILLIGRAM, BID
     Route: 048
  38. RIVOTRIL [Concomitant]
     Active Substance: CLONAZEPAM
     Dosage: 3 MILLIGRAM, BID
  39. RIVOTRIL [Concomitant]
     Active Substance: CLONAZEPAM
     Dosage: 3 MILLIGRAM, BID
     Route: 048
  40. RIVOTRIL [Concomitant]
     Active Substance: CLONAZEPAM
     Dosage: 3 MILLIGRAM, BID
  41. RIVOTRIL [Concomitant]
     Active Substance: CLONAZEPAM
     Dosage: 3.5 MILLIGRAM, BID
  42. RIVOTRIL [Concomitant]
     Active Substance: CLONAZEPAM
     Dosage: 3.5 MILLIGRAM, BID
     Route: 048
  43. RIVOTRIL [Concomitant]
     Active Substance: CLONAZEPAM
     Dosage: 3.5 MILLIGRAM, BID
  44. RIVOTRIL [Concomitant]
     Active Substance: CLONAZEPAM
     Dosage: 3.5 MILLIGRAM, BID
     Route: 048
  45. LEVETIRACETAM [Concomitant]
     Active Substance: LEVETIRACETAM
     Indication: Hypophosphatasia
     Dosage: 50 UNK, UNK
     Route: 048
  46. LEVETIRACETAM [Concomitant]
     Active Substance: LEVETIRACETAM
     Dosage: 50 UNK, UNK
     Route: 048
  47. LEVETIRACETAM [Concomitant]
     Active Substance: LEVETIRACETAM
     Dosage: 50 UNK, UNK
  48. LEVETIRACETAM [Concomitant]
     Active Substance: LEVETIRACETAM
     Dosage: 50 UNK, UNK
  49. LEVETIRACETAM [Concomitant]
     Active Substance: LEVETIRACETAM
     Dosage: 50 MILLIGRAM, BID
  50. LEVETIRACETAM [Concomitant]
     Active Substance: LEVETIRACETAM
     Dosage: 50 MILLIGRAM, BID
  51. LEVETIRACETAM [Concomitant]
     Active Substance: LEVETIRACETAM
     Dosage: 50 MILLIGRAM, BID
     Route: 048
  52. LEVETIRACETAM [Concomitant]
     Active Substance: LEVETIRACETAM
     Dosage: 50 MILLIGRAM, BID
     Route: 048
  53. LEVETIRACETAM [Concomitant]
     Active Substance: LEVETIRACETAM
     Dosage: 110 MILLIGRAM, BID
     Route: 048
  54. LEVETIRACETAM [Concomitant]
     Active Substance: LEVETIRACETAM
     Dosage: 110 MILLIGRAM, BID
  55. LEVETIRACETAM [Concomitant]
     Active Substance: LEVETIRACETAM
     Dosage: 110 MILLIGRAM, BID
  56. LEVETIRACETAM [Concomitant]
     Active Substance: LEVETIRACETAM
     Dosage: 110 MILLIGRAM, BID
     Route: 048
  57. LEVETIRACETAM [Concomitant]
     Active Substance: LEVETIRACETAM
     Dosage: 150 MILLIGRAM, BID
     Route: 048
  58. LEVETIRACETAM [Concomitant]
     Active Substance: LEVETIRACETAM
     Dosage: 150 MILLIGRAM, BID
  59. LEVETIRACETAM [Concomitant]
     Active Substance: LEVETIRACETAM
     Dosage: 150 MILLIGRAM, BID
     Route: 048
  60. LEVETIRACETAM [Concomitant]
     Active Substance: LEVETIRACETAM
     Dosage: 150 MILLIGRAM, BID
  61. LEVETIRACETAM [Concomitant]
     Active Substance: LEVETIRACETAM
     Dosage: 225 MILLIGRAM, BID
  62. LEVETIRACETAM [Concomitant]
     Active Substance: LEVETIRACETAM
     Dosage: 225 MILLIGRAM, BID
     Route: 048
  63. LEVETIRACETAM [Concomitant]
     Active Substance: LEVETIRACETAM
     Dosage: 225 MILLIGRAM, BID
  64. LEVETIRACETAM [Concomitant]
     Active Substance: LEVETIRACETAM
     Dosage: 225 MILLIGRAM, BID
     Route: 048
  65. LEVETIRACETAM [Concomitant]
     Active Substance: LEVETIRACETAM
     Dosage: 300 MILLIGRAM, BID
  66. LEVETIRACETAM [Concomitant]
     Active Substance: LEVETIRACETAM
     Dosage: 300 MILLIGRAM, BID
     Route: 048
  67. LEVETIRACETAM [Concomitant]
     Active Substance: LEVETIRACETAM
     Dosage: 300 MILLIGRAM, BID
  68. LEVETIRACETAM [Concomitant]
     Active Substance: LEVETIRACETAM
     Dosage: 300 MILLIGRAM, BID
     Route: 048
  69. LEVETIRACETAM [Concomitant]
     Active Substance: LEVETIRACETAM
     Dosage: 400 MILLIGRAM, BID
  70. LEVETIRACETAM [Concomitant]
     Active Substance: LEVETIRACETAM
     Dosage: 400 MILLIGRAM, BID
     Route: 048
  71. LEVETIRACETAM [Concomitant]
     Active Substance: LEVETIRACETAM
     Dosage: 400 MILLIGRAM, BID
  72. LEVETIRACETAM [Concomitant]
     Active Substance: LEVETIRACETAM
     Dosage: 400 MILLIGRAM, BID
     Route: 048
  73. PYRIDOXINE HYDROCHLORIDE [Concomitant]
     Active Substance: PYRIDOXINE HYDROCHLORIDE
     Indication: Hypophosphatasia
     Dosage: 225 MILLIGRAM, BID
  74. PYRIDOXINE HYDROCHLORIDE [Concomitant]
     Active Substance: PYRIDOXINE HYDROCHLORIDE
     Dosage: 225 MILLIGRAM, BID
     Route: 048
  75. PYRIDOXINE HYDROCHLORIDE [Concomitant]
     Active Substance: PYRIDOXINE HYDROCHLORIDE
     Dosage: 225 MILLIGRAM, BID
  76. PYRIDOXINE HYDROCHLORIDE [Concomitant]
     Active Substance: PYRIDOXINE HYDROCHLORIDE
     Dosage: 225 MILLIGRAM, BID
     Route: 048
  77. Mucosal [Concomitant]
     Indication: Prophylaxis
     Dosage: 4.5 MILLIGRAM, BID
     Route: 048
  78. Mucosal [Concomitant]
     Dosage: 4.5 MILLIGRAM, BID
  79. Mucosal [Concomitant]
     Dosage: 4.5 MILLIGRAM, BID
  80. Mucosal [Concomitant]
     Dosage: 4.5 MILLIGRAM, BID
     Route: 048
  81. Mucosal [Concomitant]
     Dosage: 3 MILLIGRAM, TID
  82. Mucosal [Concomitant]
     Dosage: 3 MILLIGRAM, TID
     Route: 048
  83. Mucosal [Concomitant]
     Dosage: 3 MILLIGRAM, TID
  84. Mucosal [Concomitant]
     Dosage: 3 MILLIGRAM, TID
     Route: 048
  85. Mucosal [Concomitant]
     Dosage: 4 MILLIGRAM, TID
  86. Mucosal [Concomitant]
     Dosage: 4 MILLIGRAM, TID
  87. Mucosal [Concomitant]
     Dosage: 4 MILLIGRAM, TID
     Route: 048
  88. Mucosal [Concomitant]
     Dosage: 4 MILLIGRAM, TID
     Route: 048
  89. Mucosal [Concomitant]
     Dosage: 7.5 MILLIGRAM, BID
  90. Mucosal [Concomitant]
     Dosage: 7.5 MILLIGRAM, BID
     Route: 048
  91. Mucosal [Concomitant]
     Dosage: 7.5 MILLIGRAM, BID
  92. Mucosal [Concomitant]
     Dosage: 7.5 MILLIGRAM, BID
     Route: 048
  93. CARBOCYSTEINE [Concomitant]
     Active Substance: CARBOCYSTEINE
     Indication: Prophylaxis
     Dosage: 100 MILLIGRAM, TID
     Route: 048
  94. CARBOCYSTEINE [Concomitant]
     Active Substance: CARBOCYSTEINE
     Dosage: 100 MILLIGRAM, TID
  95. CARBOCYSTEINE [Concomitant]
     Active Substance: CARBOCYSTEINE
     Dosage: 100 MILLIGRAM, TID
     Route: 048
  96. CARBOCYSTEINE [Concomitant]
     Active Substance: CARBOCYSTEINE
     Dosage: 100 MILLIGRAM, TID
  97. CARBOCYSTEINE [Concomitant]
     Active Substance: CARBOCYSTEINE
     Dosage: 133.33 MILLIGRAM, TID
     Route: 048
  98. CARBOCYSTEINE [Concomitant]
     Active Substance: CARBOCYSTEINE
     Dosage: 133.33 MILLIGRAM, TID
  99. CARBOCYSTEINE [Concomitant]
     Active Substance: CARBOCYSTEINE
     Dosage: 133.33 MILLIGRAM, TID
     Route: 048
  100. CARBOCYSTEINE [Concomitant]
     Active Substance: CARBOCYSTEINE
     Dosage: 133.33 MILLIGRAM, TID
  101. CARBOCYSTEINE [Concomitant]
     Active Substance: CARBOCYSTEINE
     Dosage: 200 MILLIGRAM, BID
  102. CARBOCYSTEINE [Concomitant]
     Active Substance: CARBOCYSTEINE
     Dosage: 200 MILLIGRAM, BID
     Route: 048
  103. CARBOCYSTEINE [Concomitant]
     Active Substance: CARBOCYSTEINE
     Dosage: 200 MILLIGRAM, BID
  104. CARBOCYSTEINE [Concomitant]
     Active Substance: CARBOCYSTEINE
     Dosage: 200 MILLIGRAM, BID
     Route: 048
  105. LEVOCARNITINE [Concomitant]
     Active Substance: LEVOCARNITINE
     Indication: Prophylaxis
     Dosage: 1 MILLILITER, TID
  106. LEVOCARNITINE [Concomitant]
     Active Substance: LEVOCARNITINE
     Dosage: 1 MILLILITER, TID
     Route: 048
  107. LEVOCARNITINE [Concomitant]
     Active Substance: LEVOCARNITINE
     Dosage: 1 MILLILITER, TID
  108. LEVOCARNITINE [Concomitant]
     Active Substance: LEVOCARNITINE
     Dosage: 1 MILLILITER, TID
     Route: 048
  109. LEVOCARNITINE [Concomitant]
     Active Substance: LEVOCARNITINE
     Dosage: 1 MILLILITER, BID
  110. LEVOCARNITINE [Concomitant]
     Active Substance: LEVOCARNITINE
     Dosage: 1 MILLILITER, BID
     Route: 048
  111. LEVOCARNITINE [Concomitant]
     Active Substance: LEVOCARNITINE
     Dosage: 1 MILLILITER, BID
  112. LEVOCARNITINE [Concomitant]
     Active Substance: LEVOCARNITINE
     Dosage: 1 MILLILITER, BID
     Route: 048
  113. ROZEREM [Concomitant]
     Active Substance: RAMELTEON
     Indication: Insomnia
     Dosage: 2 MILLIGRAM, QD
     Route: 048
  114. ROZEREM [Concomitant]
     Active Substance: RAMELTEON
     Indication: Prophylaxis
     Dosage: 2 MILLIGRAM, QD
  115. ROZEREM [Concomitant]
     Active Substance: RAMELTEON
     Dosage: 3 MILLIGRAM, QD
  116. ROZEREM [Concomitant]
     Active Substance: RAMELTEON
     Dosage: 3 MILLIGRAM, QD
     Route: 048
  117. ROZEREM [Concomitant]
     Active Substance: RAMELTEON
     Dosage: 4 MILLIGRAM, QD
     Route: 048
  118. ROZEREM [Concomitant]
     Active Substance: RAMELTEON
     Dosage: 4 MILLIGRAM, QD
  119. FYCOMPA [Concomitant]
     Active Substance: PERAMPANEL
     Indication: Hypophosphatasia
     Dosage: 2 MILLIGRAM, QD
     Route: 048
  120. FYCOMPA [Concomitant]
     Active Substance: PERAMPANEL
     Dosage: 2 MILLIGRAM, QD
  121. FYCOMPA [Concomitant]
     Active Substance: PERAMPANEL
     Dosage: 2 MILLIGRAM, QD
     Route: 048
  122. FYCOMPA [Concomitant]
     Active Substance: PERAMPANEL
     Dosage: 2 MILLIGRAM, QD
  123. FYCOMPA [Concomitant]
     Active Substance: PERAMPANEL
     Dosage: 2.5 MILLIGRAM, QD
     Route: 048
  124. FYCOMPA [Concomitant]
     Active Substance: PERAMPANEL
     Dosage: 2.5 MILLIGRAM, QD
  125. FYCOMPA [Concomitant]
     Active Substance: PERAMPANEL
     Dosage: 2.5 MILLIGRAM, QD
     Route: 048
  126. FYCOMPA [Concomitant]
     Active Substance: PERAMPANEL
     Dosage: 2.5 MILLIGRAM, QD
  127. NITRAZEPAM [Concomitant]
     Active Substance: NITRAZEPAM
     Indication: Hypophosphatasia
     Dosage: 4 MILLIGRAM, QD
     Route: 048
  128. NITRAZEPAM [Concomitant]
     Active Substance: NITRAZEPAM
     Dosage: 4 MILLIGRAM, QD
  129. HYALURONATE SODIUM [Concomitant]
     Active Substance: HYALURONATE SODIUM
     Indication: Prophylaxis
     Dosage: OPTIMAL DOSE, BID
     Route: 047
  130. HYALURONATE SODIUM [Concomitant]
     Active Substance: HYALURONATE SODIUM
     Dosage: OPTIMAL DOSE, BID

REACTIONS (3)
  - Infection [Unknown]
  - Nephrocalcinosis [Not Recovered/Not Resolved]
  - Nephrolithiasis [Not Recovered/Not Resolved]
